FAERS Safety Report 9060938 (Version 1)
Quarter: 2013Q1

REPORT INFORMATION
  Report Type: Spontaneous
  Country: BR (occurrence: BR)
  Receive Date: 20130213
  Receipt Date: 20130213
  Transmission Date: 20140127
  Serious: Yes (Hospitalization, Other)
  Sender: FDA-Public Use
  Company Number: BR-AMGEN-BRASP2012015534

PATIENT
  Age: 52 Year
  Sex: Female
  Weight: 72 kg

DRUGS (18)
  1. ENBREL [Suspect]
     Indication: RHEUMATOID ARTHRITIS
     Dosage: 50 MG, WEEKLY
     Route: 058
     Dates: start: 201202
  2. ENBREL [Suspect]
     Dosage: UNK
  3. PREDNISONE [Concomitant]
     Dosage: STRENGTH 5MG, ONCE DAILY
  4. PREDNISONE [Concomitant]
     Dosage: STRENGTH 20MG
  5. REUQUINOL [Concomitant]
     Indication: HYPERTENSION
     Dosage: STRENGTH 400MG, ONCE DAILY
     Dates: start: 201202
  6. RIVOTRIL [Concomitant]
     Indication: HYPERTENSION
     Dosage: STRENGTH 2MG ONCE DAILY
  7. SYNTHROID [Concomitant]
     Indication: HYPERTENSION
     Dosage: STRENGTH 100MG ONCE DAILY
     Dates: start: 2008
  8. SYNTHROID [Concomitant]
     Indication: THYROID DISORDER
     Dosage: UNK
  9. ENALAPRIL [Concomitant]
     Indication: HYPERTENSION
     Dosage: STRENGTH 10MG ONCE DAILY
     Dates: start: 201111
  10. ENALAPRIL [Concomitant]
     Indication: BLOOD PRESSURE
  11. OMEPRAZOLE [Concomitant]
     Indication: GASTRIC DISORDER
     Dosage: STRENGTH 20MG ONCE DAILY
     Dates: start: 2008
  12. OMEPRAZOLE [Concomitant]
     Indication: ULCER
     Dosage: UNK
  13. LORATADINE [Concomitant]
     Indication: HYPERSENSITIVITY
     Dosage: STRENGTH 10MG ONCE DAILY
  14. HYDROCHLOROTHIAZIDE [Concomitant]
     Indication: HYPERTENSION
     Dosage: ONCE DAILY
     Dates: start: 201111
  15. HYDROCHLOROTHIAZIDE [Concomitant]
     Indication: BLOOD PRESSURE
     Dosage: UNK
  16. METICORTEN [Concomitant]
     Indication: ARTHRITIS
     Dosage: UNK
     Dates: start: 2003
  17. PARACETAMOL [Concomitant]
     Dosage: UNK
  18. DESONIDE [Concomitant]
     Dosage: UNK

REACTIONS (11)
  - Systemic lupus erythematosus [Unknown]
  - Immune system disorder [Not Recovered/Not Resolved]
  - Platelet count decreased [Not Recovered/Not Resolved]
  - Animal scratch [Unknown]
  - Anaemia [Not Recovered/Not Resolved]
  - Erysipelas [Unknown]
  - Injection site erythema [Unknown]
  - Injection site pruritus [Unknown]
  - Injection site urticaria [Unknown]
  - Injection site induration [Unknown]
  - Injection site swelling [Unknown]
